FAERS Safety Report 10532925 (Version 1)
Quarter: 2014Q4

REPORT INFORMATION
  Report Type: Spontaneous
  Country: FR (occurrence: FR)
  Receive Date: 20141022
  Receipt Date: 20141022
  Transmission Date: 20150529
  Serious: Yes (Hospitalization)
  Sender: FDA-Public Use
  Company Number: FR-ASPEN PHARMA TRADING LIMITED US-AG-2014-006618

PATIENT
  Age: 79 Year
  Sex: Female

DRUGS (9)
  1. CARDENSIEL 2,5 MG [Suspect]
     Active Substance: BISOPROLOL
     Indication: LEFT VENTRICULAR FAILURE
     Route: 048
     Dates: start: 20140610
  2. KARDEGIC [Suspect]
     Active Substance: ASPIRIN LYSINE
     Indication: LEFT VENTRICULAR FAILURE
     Route: 048
     Dates: start: 20140618
  3. CORDARONE [Suspect]
     Active Substance: AMIODARONE HYDROCHLORIDE
     Indication: LEFT VENTRICULAR FAILURE
     Route: 048
     Dates: start: 20140610
  4. AUGMENTIN [Suspect]
     Active Substance: AMOXICILLIN\CLAVULANATE POTASSIUM
     Indication: PRODUCT USED FOR UNKNOWN INDICATION
     Route: 065
     Dates: start: 20140715, end: 20140718
  5. ARIXTRA [Suspect]
     Active Substance: FONDAPARINUX SODIUM
     Indication: LEFT VENTRICULAR FAILURE
     Route: 058
     Dates: start: 20140610
  6. TARCEVA [Suspect]
     Active Substance: ERLOTINIB HYDROCHLORIDE
     Indication: ADENOCARCINOMA
     Route: 048
     Dates: start: 20140516
  7. ERYFLUID [Suspect]
     Active Substance: ERYTHROMYCIN
     Indication: FOLLICULITIS
     Route: 061
     Dates: start: 20140528
  8. DOXYCYCLINE. [Suspect]
     Active Substance: DOXYCYCLINE
     Indication: FOLLICULITIS
     Route: 048
     Dates: start: 201407, end: 20140804
  9. LASILIX FAIBLE 20 MG [Suspect]
     Active Substance: FUROSEMIDE
     Indication: LEFT VENTRICULAR FAILURE
     Route: 048
     Dates: start: 20140610

REACTIONS (2)
  - Pancreatic cyst [None]
  - Pancreatitis acute [Recovered/Resolved]

NARRATIVE: CASE EVENT DATE: 20140803
